FAERS Safety Report 10392148 (Version 3)
Quarter: 2015Q3

REPORT INFORMATION
  Report Type: Spontaneous
  Country: US (occurrence: US)
  Receive Date: 20140819
  Receipt Date: 20150806
  Transmission Date: 20151125
  Serious: No
  Sender: FDA-Public Use
  Company Number: US-BIOGENIDEC-2014BI079971

PATIENT
  Age: 39 Year
  Sex: Female

DRUGS (2)
  1. TECFIDERA [Suspect]
     Active Substance: DIMETHYL FUMARATE
     Indication: MULTIPLE SCLEROSIS
     Route: 048
     Dates: start: 20130613
  2. PROLACTINO [Concomitant]
     Indication: SJOGREN^S SYNDROME

REACTIONS (17)
  - Foot operation [Unknown]
  - Drug hypersensitivity [Not Recovered/Not Resolved]
  - Multiple sclerosis relapse [Not Recovered/Not Resolved]
  - Stress [Unknown]
  - Fatigue [Unknown]
  - Blepharospasm [Not Recovered/Not Resolved]
  - Incontinence [Not Recovered/Not Resolved]
  - Dermatitis allergic [Not Recovered/Not Resolved]
  - Photosensitivity reaction [Not Recovered/Not Resolved]
  - Memory impairment [Not Recovered/Not Resolved]
  - Mydriasis [Not Recovered/Not Resolved]
  - Bladder disorder [Not Recovered/Not Resolved]
  - Nausea [Recovered/Resolved]
  - Pain [Not Recovered/Not Resolved]
  - Anxiety [Not Recovered/Not Resolved]
  - Gastric disorder [Recovered/Resolved]
  - Balance disorder [Not Recovered/Not Resolved]

NARRATIVE: CASE EVENT DATE: 201306
